FAERS Safety Report 7386880-9 (Version None)
Quarter: 2011Q1

REPORT INFORMATION
  Report Type: 
  Country: None (occurrence: None)
  Receive Date: 20110331
  Receipt Date: 20110329
  Transmission Date: 20110831
  Serious: No
  Sender: FDA-Public Use
  Company Number: US-PFIZER INC-2011069838

PATIENT

DRUGS (1)
  1. EFFEXOR [Suspect]
     Dosage: 150 MG, UNK

REACTIONS (1)
  - SEXUAL DYSFUNCTION [None]
